FAERS Safety Report 9498694 (Version 1)
Quarter: 2013Q3

REPORT INFORMATION
  Report Type: Spontaneous
  Country: BR (occurrence: None)
  Receive Date: 20130830
  Receipt Date: 20130830
  Transmission Date: 20140515
  Serious: Yes (Death)
  Sender: FDA-Public Use
  Company Number: SYM-2013-09581

PATIENT
  Sex: 0

DRUGS (3)
  1. FLUOROURACIL (FLUOROURACIL) [Suspect]
     Indication: ADENOCARCINOMA GASTRIC
     Route: 042
  2. LEUCOVORIN (FOLINIC ACID) [Suspect]
     Indication: ADENOCARCINOMA GASTRIC
     Route: 042
  3. THERAPEUTIC RADIOPHARMACEUTICALS [Suspect]
     Indication: ADENOCARCINOMA GASTRIC
     Dosage: 45 GY

REACTIONS (1)
  - Death [None]
